FAERS Safety Report 23575486 (Version 5)
Quarter: 2025Q1

REPORT INFORMATION
  Report Type: Spontaneous
  Country: US (occurrence: US)
  Receive Date: 20240228
  Receipt Date: 20250102
  Transmission Date: 20250409
  Serious: Yes (Other)
  Sender: BRISTOL-MYERS SQUIBB COMPANY
  Company Number: US-BRISTOL-MYERS SQUIBB COMPANY-2024-028573

PATIENT
  Age: 91 Year
  Sex: Female

DRUGS (5)
  1. REVLIMID [Suspect]
     Active Substance: LENALIDOMIDE
     Indication: Plasma cell myeloma
     Dosage: FREQUENCY: DAILY
     Route: 048
     Dates: start: 201607
  2. REVLIMID [Suspect]
     Active Substance: LENALIDOMIDE
     Indication: Plasma cell myeloma in remission
     Route: 048
  3. REVLIMID [Suspect]
     Active Substance: LENALIDOMIDE
     Route: 048
     Dates: start: 201607
  4. REVLIMID [Suspect]
     Active Substance: LENALIDOMIDE
     Route: 048
     Dates: start: 20211110
  5. REVLIMID [Suspect]
     Active Substance: LENALIDOMIDE
     Dosage: DAILY FOR 21 DAYS THEN 7 OFF
     Route: 048
     Dates: start: 20211109

REACTIONS (8)
  - Dizziness [Recovering/Resolving]
  - Neuropathy peripheral [Unknown]
  - Onychoclasis [Unknown]
  - Fatigue [Unknown]
  - Diarrhoea [Unknown]
  - Irritable bowel syndrome [Recovering/Resolving]
  - Gastrointestinal disorder [Unknown]
  - Flatulence [Recovering/Resolving]
